FAERS Safety Report 14869739 (Version 2)
Quarter: 2018Q2

REPORT INFORMATION
  Report Type: Spontaneous
  Country: JP (occurrence: JP)
  Receive Date: 20180509
  Receipt Date: 20180601
  Transmission Date: 20180711
  Serious: Yes (Hospitalization)
  Sender: FDA-Public Use
  Company Number: PHJP2018JP010083

PATIENT
  Age: 102 Year
  Sex: Female

DRUGS (1)
  1. EXELON PATCH [Suspect]
     Active Substance: RIVASTIGMINE
     Indication: DEMENTIA ALZHEIMER^S TYPE
     Dosage: 0.25 DF, QD (1/4 OF 1.9MG, QD (PATCH 2.5CM2, 4.5 MG RIVASTIGMINE BASE))
     Route: 062

REACTIONS (3)
  - Femur fracture [Recovering/Resolving]
  - Agitation [Unknown]
  - Wrong technique in product usage process [Unknown]

NARRATIVE: CASE EVENT DATE: 20180507
